FAERS Safety Report 12091584 (Version 1)
Quarter: 2016Q1

REPORT INFORMATION
  Report Type: Other
  Country: VE (occurrence: VE)
  Receive Date: 20160218
  Receipt Date: 20160218
  Transmission Date: 20160526
  Serious: Yes (Hospitalization)
  Sender: FDA-Public Use
  Company Number: VE-DEP_13666_2016

PATIENT
  Sex: Male

DRUGS (4)
  1. ATAMEL [Concomitant]
     Active Substance: ACETAMINOPHEN
     Indication: CHEMOTHERAPY
     Dosage: DF
  2. CISPLATIN. [Concomitant]
     Active Substance: CISPLATIN
     Indication: CHEMOTHERAPY
     Dosage: DF
  3. EXFORGE HCT [Suspect]
     Active Substance: AMLODIPINE BESYLATE\HYDROCHLOROTHIAZIDE\VALSARTAN
     Indication: HYPERTENSION
     Dosage: 160/5
     Route: 048
  4. CATAFLAM [Suspect]
     Active Substance: DICLOFENAC POTASSIUM
     Indication: PYREXIA
     Dosage: 50 MG, UNK
     Route: 048

REACTIONS (11)
  - Diarrhoea [Unknown]
  - Asthenia [Unknown]
  - Blood chromogranin A increased [Unknown]
  - Decreased immune responsiveness [Unknown]
  - General physical health deterioration [Unknown]
  - Blood pressure decreased [Unknown]
  - Lung neoplasm malignant [Unknown]
  - Platelet count decreased [Unknown]
  - Decreased appetite [Unknown]
  - Injury [Unknown]
  - Haemoglobin decreased [Unknown]
